FAERS Safety Report 9204147 (Version 1)
Quarter: 2013Q1

REPORT INFORMATION
  Report Type: Spontaneous
  Country: US (occurrence: None)
  Receive Date: 20120709
  Receipt Date: 20120709
  Transmission Date: 20140127
  Serious: Yes (Other)
  Sender: FDA-Public Use
  Company Number: PHEH2011US07721

PATIENT
  Age: 58 Year
  Sex: Female
  Weight: 84.4 kg

DRUGS (2)
  1. GLEEVEC (IMATINIB) UNKNOWN [Suspect]
  2. SPRYCEL (DASATINIB) [Suspect]

REACTIONS (1)
  - Pleural effusion [None]
